FAERS Safety Report 4657256-X (Version None)
Quarter: 2005Q2

REPORT INFORMATION
  Report Type: 
  Country: None (occurrence: None)
  Receive Date: 20050506
  Receipt Date: 20050422
  Transmission Date: 20051028
  Serious: Yes (Death)
  Sender: FDA-Public Use
  Company Number: 1797

PATIENT
  Sex: Male

DRUGS (1)
  1. TARGRETIN [Suspect]
     Indication: T-CELL LYMPHOMA
     Dosage: 150 MG DAILY PO
     Route: 048

REACTIONS (1)
  - GASTROINTESTINAL HAEMORRHAGE [None]
